FAERS Safety Report 6671472-7 (Version None)
Quarter: 2010Q2

REPORT INFORMATION
  Report Type: 
  Country: None (occurrence: None)
  Receive Date: 20100407
  Receipt Date: 20100330
  Transmission Date: 20101027
  Serious: Yes (Disabling)
  Sender: FDA-Public Use
  Company Number: JP-MERCK-1004USA00231

PATIENT
  Age: 80 Year

DRUGS (2)
  1. PRIMAXIN [Suspect]
     Indication: SEPSIS
     Route: 041
  2. PRIMAXIN [Suspect]
     Route: 041

REACTIONS (3)
  - NO THERAPEUTIC RESPONSE [None]
  - RENAL DISORDER [None]
  - UROSEPSIS [None]
